FAERS Safety Report 4332422-1 (Version None)
Quarter: 2004Q1

REPORT INFORMATION
  Report Type: 
  Country: None (occurrence: None)
  Receive Date: 20040329
  Receipt Date: 20040123
  Transmission Date: 20041129
  Serious: No
  Sender: FDA-Public Use
  Company Number: 04P-163-0248105

PATIENT
  Age: 42 Year
  Sex: Male
  Weight: 76.6579 kg

DRUGS (4)
  1. HUMIRA [Suspect]
     Indication: RHEUMATOID ARTHRITIS
     Dosage: 40 MG, 1 IN 2 WK, SUBCUTANEOUS
     Route: 058
     Dates: start: 20030701
  2. LEFLUNOMIDE [Concomitant]
  3. PREDNISONE [Concomitant]
  4. ROFECOXIB [Concomitant]

REACTIONS (2)
  - NASOPHARYNGITIS [None]
  - RHINORRHOEA [None]
